FAERS Safety Report 18366441 (Version 1)
Quarter: 2020Q4

REPORT INFORMATION
  Report Type: Spontaneous
  Country: FR (occurrence: FR)
  Receive Date: 20201009
  Receipt Date: 20201009
  Transmission Date: 20210114
  Serious: Yes (Hospitalization)
  Sender: FDA-Public Use
  Company Number: FR-PFIZER INC-2020386269

PATIENT
  Age: 37 Year
  Sex: Female
  Weight: 68.4 kg

DRUGS (5)
  1. AMOXICILLINE PANPHARMA [Suspect]
     Active Substance: AMOXICILLIN
     Indication: PREMATURE RUPTURE OF MEMBRANES
     Dosage: 2 G, SINGLE
     Route: 042
     Dates: start: 20171002, end: 20171002
  2. IBUPROFENE ARROW [Suspect]
     Active Substance: IBUPROFEN
     Indication: AFTERBIRTH PAIN
     Dosage: 400 MG, SINGLE (2 TABLETS OF 200 MG)
     Route: 048
     Dates: start: 20171003, end: 20171003
  3. RHINADVIL [Suspect]
     Active Substance: IBUPROFEN\PSEUDOEPHEDRINE HYDROCHLORIDE
     Indication: NASOPHARYNGITIS
     Dosage: 1 TABLET, SINGLE
     Route: 048
     Dates: start: 20171004, end: 20171004
  4. AMOXICILLIN. [Suspect]
     Active Substance: AMOXICILLIN
     Dosage: 1 G, 3X/DAY
     Route: 048
     Dates: start: 20171024, end: 20171024
  5. DOLIPRANE [Concomitant]
     Active Substance: ACETAMINOPHEN
     Dosage: UNK

REACTIONS (3)
  - Drug reaction with eosinophilia and systemic symptoms [Recovered/Resolved]
  - Dermatitis bullous [Recovered/Resolved]
  - Rash pruritic [Recovered/Resolved]

NARRATIVE: CASE EVENT DATE: 20171005
